FAERS Safety Report 9704003 (Version 1)
Quarter: 2013Q4

REPORT INFORMATION
  Report Type: Spontaneous
  Country: US (occurrence: US)
  Receive Date: 20131122
  Receipt Date: 20131122
  Transmission Date: 20140711
  Serious: Yes (Hospitalization)
  Sender: FDA-Public Use
  Company Number: US-BAYER-2013-141364

PATIENT
  Age: 23 Year
  Sex: Female
  Weight: 68.03 kg

DRUGS (4)
  1. YAZ [Suspect]
     Dosage: UNK
     Dates: start: 2007, end: 2011
  2. CLINDAMYCIN PHOSPHATE [Concomitant]
     Dosage: 2 %, UNK
  3. VICODIN [Concomitant]
     Dosage: 50-500 MG AS NEEDED
  4. IBUPROFEN [Concomitant]
     Dosage: 600 MG, PRN

REACTIONS (4)
  - Deep vein thrombosis [Recovered/Resolved]
  - Pain in extremity [Recovered/Resolved]
  - Local swelling [Recovered/Resolved]
  - Skin discolouration [Recovered/Resolved]
